FAERS Safety Report 16814221 (Version 1)
Quarter: 2019Q3

REPORT INFORMATION
  Report Type: Spontaneous
  Country: US (occurrence: US)
  Receive Date: 20190917
  Receipt Date: 20190917
  Transmission Date: 20191005
  Serious: No
  Sender: FDA-Public Use
  Company Number: US-ALLERGAN-1925269US

PATIENT
  Age: 55 Year
  Sex: Female
  Weight: 61.22 kg

DRUGS (2)
  1. CARAFATE [Suspect]
     Active Substance: SUCRALFATE
     Indication: ULCER
     Dosage: 10 ML, QID
     Route: 048
     Dates: start: 20190614
  2. GABAPENTIN. [Concomitant]
     Active Substance: GABAPENTIN
     Indication: SYSTEMIC LUPUS ERYTHEMATOSUS

REACTIONS (2)
  - Oral mucosal exfoliation [Not Recovered/Not Resolved]
  - Oedema mouth [Not Recovered/Not Resolved]

NARRATIVE: CASE EVENT DATE: 20190614
